FAERS Safety Report 14929359 (Version 1)
Quarter: 2018Q2

REPORT INFORMATION
  Report Type: Spontaneous
  Country: US (occurrence: US)
  Receive Date: 20180504
  Receipt Date: 20180504
  Transmission Date: 20180711
  Serious: No
  Sender: FDA-Public Use
  Company Number: None

PATIENT
  Age: 65 Year
  Sex: Female

DRUGS (1)
  1. HUMIRA [Suspect]
     Active Substance: ADALIMUMAB
     Indication: RHEUMATOID ARTHRITIS
     Route: 058
     Dates: start: 20180409, end: 20180423

REACTIONS (7)
  - Wheezing [None]
  - Pruritus [None]
  - Urticaria [None]
  - Respiratory disorder [None]
  - Erythema [None]
  - Rash [None]
  - Aphonia [None]

NARRATIVE: CASE EVENT DATE: 20180423
